FAERS Safety Report 8161916-6 (Version None)
Quarter: 2012Q1

REPORT INFORMATION
  Report Type: 
  Country: None (occurrence: None)
  Receive Date: 20120224
  Receipt Date: 20120210
  Transmission Date: 20120608
  Serious: Yes (Hospitalization)
  Sender: FDA-Public Use
  Company Number: GB-MYLANLABS-2012S1003399

PATIENT
  Sex: Male

DRUGS (8)
  1. FUROSEMIDE [Concomitant]
     Route: 065
  2. ASPIRIN [Concomitant]
     Route: 065
  3. AMILORIDE HYDROCHLORIDE [Concomitant]
     Indication: ASCITES
     Route: 065
     Dates: start: 20080101, end: 20090201
  4. PRAVASTATIN [Concomitant]
     Route: 065
  5. PROPRANOLOL [Suspect]
     Indication: PORTAL HYPERTENSION
     Route: 065
     Dates: start: 20070801, end: 20090101
  6. RANITIDINE [Concomitant]
     Route: 065
  7. ATENOLOL [Suspect]
     Indication: MYOCARDIAL ISCHAEMIA
     Route: 065
     Dates: start: 20050101, end: 20091101
  8. FUROSEMIDE [Concomitant]
     Indication: ASCITES
     Route: 065
     Dates: start: 20090201

REACTIONS (1)
  - SCLEROSING ENCAPSULATING PERITONITIS [None]
